FAERS Safety Report 17257529 (Version 1)
Quarter: 2020Q1

REPORT INFORMATION
  Report Type: Spontaneous
  Country: US (occurrence: US)
  Receive Date: 20200109
  Receipt Date: 20200109
  Transmission Date: 20200409
  Serious: Yes (Hospitalization)
  Sender: FDA-Public Use
  Company Number: None

PATIENT
  Age: 50 Year
  Sex: Female

DRUGS (1)
  1. EMGALITY [Suspect]
     Active Substance: GALCANEZUMAB-GNLM
     Indication: MIGRAINE
     Dates: start: 20190606

REACTIONS (10)
  - Dizziness [None]
  - Vision blurred [None]
  - Nausea [None]
  - Dyspnoea [None]
  - Hyperhidrosis [None]
  - Palpitations [None]
  - Chest pain [None]
  - Fatigue [None]
  - Alopecia [None]
  - Insomnia [None]

NARRATIVE: CASE EVENT DATE: 20190607
